FAERS Safety Report 7892823-1 (Version None)
Quarter: 2011Q4

REPORT INFORMATION
  Report Type: 
  Country: None (occurrence: None)
  Receive Date: 20111104
  Receipt Date: 20111101
  Transmission Date: 20120403
  Serious: Yes (Death)
  Sender: FDA-Public Use
  Company Number: JP-SANOFI-AVENTIS-2011SA066621

PATIENT
  Age: 69 Year
  Sex: Male
  Weight: 58.6 kg

DRUGS (4)
  1. CISPLATIN [Concomitant]
     Route: 042
     Dates: start: 20110912, end: 20110916
  2. FLUOROURACIL [Concomitant]
     Dosage: DOSE: 350
     Route: 042
     Dates: start: 20110912, end: 20110916
  3. TAXOTERE [Suspect]
     Route: 065
     Dates: start: 20110914, end: 20110914
  4. DECADRON [Concomitant]
     Indication: PREMEDICATION

REACTIONS (4)
  - DECREASED APPETITE [None]
  - VOMITING [None]
  - THROAT IRRITATION [None]
  - CARDIO-RESPIRATORY ARREST [None]
